FAERS Safety Report 7551203-9 (Version None)
Quarter: 2011Q2

REPORT INFORMATION
  Report Type: 
  Country: None (occurrence: None)
  Receive Date: 20110616
  Receipt Date: 20110603
  Transmission Date: 20111010
  Serious: Yes (Hospitalization)
  Sender: FDA-Public Use
  Company Number: PHFR2010GB01251

PATIENT
  Sex: Male

DRUGS (7)
  1. LORAZEPAM [Concomitant]
  2. DEPAKOTE [Concomitant]
  3. VENLAFAXINE [Concomitant]
  4. CLOZAPINE [Suspect]
     Indication: SCHIZOPHRENIA
     Route: 048
     Dates: start: 19980717
  5. CLOZAPINE [Suspect]
     Dosage: 300 MG,
     Route: 048
     Dates: start: 20110222
  6. CLONAZEPAM [Concomitant]
  7. ALFACALCIDOL [Concomitant]

REACTIONS (11)
  - NEPHROPATHY [None]
  - OBESITY [None]
  - BLOOD CREATININE INCREASED [None]
  - TYPE 2 DIABETES MELLITUS [None]
  - ABDOMINAL DISCOMFORT [None]
  - HYPERTENSION [None]
  - MENTAL IMPAIRMENT [None]
  - SEDATION [None]
  - HYPERCHOLESTEROLAEMIA [None]
  - ANTIPSYCHOTIC DRUG LEVEL INCREASED [None]
  - RENAL FAILURE [None]
